FAERS Safety Report 4846842-X (Version None)
Quarter: 2005Q4

REPORT INFORMATION
  Report Type: 
  Country: None (occurrence: None)
  Receive Date: 20051207
  Receipt Date: 20051201
  Transmission Date: 20060501
  Serious: Yes (Other)
  Sender: FDA-Public Use
  Company Number: GB-SP-2005-02617

PATIENT
  Age: 64 Year
  Sex: Male

DRUGS (4)
  1. IMMUCYST [Suspect]
     Indication: BLADDER CANCER
     Route: 043
     Dates: start: 20051122
  2. ASPIRIN [Concomitant]
  3. ATENOLOL [Concomitant]
  4. CHINESE MEDICINE [Concomitant]

REACTIONS (2)
  - PRURITUS [None]
  - RASH [None]
